FAERS Safety Report 5904906-3 (Version None)
Quarter: 2008Q4

REPORT INFORMATION
  Report Type: 
  Country: None (occurrence: None)
  Receive Date: 20081001
  Receipt Date: 20080929
  Transmission Date: 20090506
  Serious: Yes (Death)
  Sender: FDA-Public Use
  Company Number: B0539033A

PATIENT
  Age: 18 Year
  Sex: Female

DRUGS (21)
  1. FLOLAN [Suspect]
     Indication: PULMONARY HYPERTENSION
     Route: 042
     Dates: start: 20040708, end: 20070501
  2. TRACLEER [Suspect]
     Route: 048
  3. RENIVACE [Concomitant]
     Route: 048
  4. FUROSEMIDE [Concomitant]
     Route: 065
  5. SPIRONOLACTONE [Concomitant]
     Route: 048
  6. ONEALFA [Concomitant]
     Route: 048
  7. UNKNOWN DRUG [Concomitant]
     Route: 048
  8. KAYWAN [Concomitant]
     Route: 048
  9. URSO 250 [Concomitant]
     Route: 048
  10. ZYLORIC [Concomitant]
     Route: 048
  11. FAMOTIDINE [Concomitant]
     Route: 048
  12. INDERAL [Concomitant]
     Route: 048
  13. ALLOID G [Concomitant]
     Route: 048
  14. COMELIAN [Concomitant]
     Route: 048
  15. PYRINAZIN [Concomitant]
     Route: 048
  16. BIOFERMIN [Concomitant]
     Route: 048
  17. SOLU-CORTEF [Concomitant]
  18. ADONA (AC-17) [Concomitant]
  19. TRANSAMIN [Concomitant]
  20. OMEPRAZOLE [Concomitant]
  21. INOVAN [Concomitant]

REACTIONS (1)
  - HAEMOPTYSIS [None]
